FAERS Safety Report 12654117 (Version 1)
Quarter: 2016Q3

REPORT INFORMATION
  Report Type: Spontaneous
  Country: US (occurrence: None)
  Receive Date: 20160815
  Receipt Date: 20160815
  Transmission Date: 20161109
  Serious: Yes (Other)
  Sender: FDA-Public Use
  Company Number: None

PATIENT
  Age: 46 Year
  Sex: Female
  Weight: 56.7 kg

DRUGS (4)
  1. CIPROFLOXACIN, 250 MG [Suspect]
     Active Substance: CIPROFLOXACIN
     Indication: COLITIS
     Dates: start: 20160802, end: 20160810
  2. MULTI VITAMIN [Concomitant]
     Active Substance: VITAMINS
  3. TEA [Concomitant]
     Active Substance: TEA LEAF
  4. VITAMIN D WITH CALCIUM [Concomitant]
     Active Substance: CALCIUM\CHOLECALCIFEROL

REACTIONS (10)
  - Dysgraphia [None]
  - Pain in extremity [None]
  - Muscular weakness [None]
  - Asthenia [None]
  - Nausea [None]
  - Malaise [None]
  - Pyrexia [None]
  - Impaired work ability [None]
  - Musculoskeletal disorder [None]
  - Grip strength decreased [None]

NARRATIVE: CASE EVENT DATE: 20160803
